FAERS Safety Report 8222780-X (Version None)
Quarter: 2012Q1

REPORT INFORMATION
  Report Type: 
  Country: None (occurrence: None)
  Receive Date: 20120320
  Receipt Date: 20120316
  Transmission Date: 20120608
  Serious: Yes (Other)
  Sender: FDA-Public Use
  Company Number: CO-ABBOTT-12P-036-0916702-00

PATIENT
  Age: 42 Year
  Sex: Male

DRUGS (11)
  1. CARBAMAZEPINE [Concomitant]
     Indication: PRODUCT USED FOR UNKNOWN INDICATION
  2. VALPROATE SODIUM [Suspect]
     Indication: EPILEPSY
     Dosage: ONCE
     Route: 042
  3. PHENOBARBITAL TAB [Interacting]
     Indication: EPILEPSY
     Dosage: 1400 MG ONCE
  4. PHENOBARBITAL TAB [Interacting]
     Dosage: DAILY
  5. PHENYTOIN [Concomitant]
     Indication: PRODUCT USED FOR UNKNOWN INDICATION
  6. LEVETIRACETAM [Concomitant]
     Indication: PRODUCT USED FOR UNKNOWN INDICATION
  7. HYPNOTICS AND SEDATIVES [Concomitant]
     Indication: PRODUCT USED FOR UNKNOWN INDICATION
  8. TOPIRAMATE [Interacting]
     Indication: EPILEPSY
  9. VALPROATE SODIUM [Interacting]
     Route: 042
  10. MIDAZOLAM [Concomitant]
     Indication: PRODUCT USED FOR UNKNOWN INDICATION
  11. TOPIRAMATE [Interacting]
     Dosage: 200 MG DAILY

REACTIONS (5)
  - AMMONIA INCREASED [None]
  - DRUG INTERACTION [None]
  - DRUG LEVEL INCREASED [None]
  - HYPERAMMONAEMIC ENCEPHALOPATHY [None]
  - ALANINE AMINOTRANSFERASE INCREASED [None]
